FAERS Safety Report 4964258-2 (Version None)
Quarter: 2006Q1

REPORT INFORMATION
  Report Type: 
  Country: None (occurrence: None)
  Receive Date: 20060331
  Receipt Date: 20060313
  Transmission Date: 20060701
  Serious: Yes (Hospitalization)
  Sender: FDA-Public Use
  Company Number: US200602004788

PATIENT
  Age: 45 Year
  Sex: Female

DRUGS (2)
  1. HUMATROPE [Suspect]
     Dosage: 0.3 MG, DAILY (1/D)
     Dates: start: 20030101
  2. HUMATROPEN (HUMATROPEN) PEN, REUSABLE [Concomitant]

REACTIONS (8)
  - APHAGIA [None]
  - CATHETER RELATED COMPLICATION [None]
  - DEVICE FAILURE [None]
  - DEVICE MALFUNCTION [None]
  - DYSPHAGIA [None]
  - FEEDING TUBE COMPLICATION [None]
  - PHARMACEUTICAL PRODUCT COMPLAINT [None]
  - WRONG TECHNIQUE IN DRUG USAGE PROCESS [None]
